FAERS Safety Report 10232727 (Version 2)
Quarter: 2014Q3

REPORT INFORMATION
  Report Type: Spontaneous
  Country: CZ (occurrence: CZ)
  Receive Date: 20140612
  Receipt Date: 20140722
  Transmission Date: 20150326
  Serious: Yes (Hospitalization, Other)
  Sender: FDA-Public Use
  Company Number: CZ-AMGEN-CZESP2014042376

PATIENT
  Age: 58 Year
  Sex: Male
  Weight: 88 kg

DRUGS (7)
  1. ARANESP [Suspect]
     Active Substance: DARBEPOETIN ALFA
     Indication: ANAEMIA
     Dosage: 20 MUG, UNK
     Route: 042
  2. ANOPYRIN [Concomitant]
     Active Substance: ASPIRIN
     Dosage: 100 MG, QD
     Route: 048
  3. ATGAM [Concomitant]
     Active Substance: EQUINE THYMOCYTE IMMUNE GLOBULIN
     Dosage: 6.25 MG, BID
     Route: 048
     Dates: start: 20130604
  4. AKTIFERRIN                         /00631201/ [Concomitant]
     Active Substance: FERROUS SULFATE\SERINE
     Indication: ANAEMIA
     Dosage: 34.5 MG, QD
     Route: 048
  5. FURON                              /00032601/ [Concomitant]
     Active Substance: FUROSEMIDE
     Dosage: 40 MG, QD
     Route: 048
     Dates: start: 20130604
  6. FRAXIPARINE                        /01437701/ [Concomitant]
     Active Substance: NADROPARIN CALCIUM
  7. CONTROLOC                          /01263201/ [Concomitant]
     Dosage: 40 MG, QD
     Route: 048
     Dates: start: 20130604

REACTIONS (4)
  - Dyspnoea [Unknown]
  - Convulsion [Unknown]
  - Hypertensive crisis [Unknown]
  - Muscle spasms [Unknown]

NARRATIVE: CASE EVENT DATE: 20140531
